FAERS Safety Report 4546110-X (Version None)
Quarter: 2005Q1

REPORT INFORMATION
  Report Type: 
  Country: None (occurrence: None)
  Receive Date: 20050103
  Receipt Date: 20041221
  Transmission Date: 20050727
  Serious: Yes (Other)
  Sender: FDA-Public Use
  Company Number: HQWYE084613AUG03

PATIENT
  Age: 51 Year
  Sex: Female

DRUGS (6)
  1. PREMPRO [Suspect]
     Indication: MENOPAUSE
     Dosage: 0.625MG/ 5MG DAILY, ORAL
     Route: 048
     Dates: start: 20000101, end: 20020101
  2. PREMARIN [Suspect]
     Dosage: UNSPECIFIED, ORAL
     Route: 048
     Dates: start: 20000101, end: 20020101
  3. VIOXX [Concomitant]
  4. CELEBREX [Concomitant]
  5. PAXIL [Concomitant]
  6. AMBEIN (ZOLPIDEM TARTRATE) [Concomitant]

REACTIONS (16)
  - BLOOD ALBUMIN INCREASED [None]
  - BRAIN OEDEMA [None]
  - CEREBRAL HAEMORRHAGE [None]
  - CEREBRAL PARENCHYMAL CALCIFICATION [None]
  - CEREBRAL VENOUS THROMBOSIS [None]
  - CEREBROVASCULAR ACCIDENT [None]
  - COMPUTERISED TOMOGRAM ABNORMAL [None]
  - CONVULSION [None]
  - CSF PROTEIN INCREASED [None]
  - GLIOMA [None]
  - HEADACHE [None]
  - HEMIPARESIS [None]
  - INJURY [None]
  - NUCLEAR MAGNETIC RESONANCE IMAGING BRAIN ABNORMAL [None]
  - RED BLOOD CELLS CSF POSITIVE [None]
  - TAENIASIS [None]
